FAERS Safety Report 16681688 (Version 1)
Quarter: 2019Q3

REPORT INFORMATION
  Report Type: Report from Study
  Country: US (occurrence: US)
  Receive Date: 20190808
  Receipt Date: 20190808
  Transmission Date: 20191004
  Serious: No
  Sender: FDA-Public Use
  Company Number: PHEH2019US032626

PATIENT
  Sex: Male

DRUGS (1)
  1. ENTRESTO [Suspect]
     Active Substance: SACUBITRIL\VALSARTAN
     Indication: CORONARY ARTERY DISEASE
     Dosage: 50 MG (SACUBITRIL 24 MG/ VALSARTAN 26 MG), BID
     Route: 048
     Dates: start: 20180120

REACTIONS (2)
  - Amnesia [Unknown]
  - Product use in unapproved indication [Unknown]
